FAERS Safety Report 7759781-1 (Version None)
Quarter: 2011Q3

REPORT INFORMATION
  Report Type: 
  Country: None (occurrence: None)
  Receive Date: 20110915
  Receipt Date: 20110606
  Transmission Date: 20111222
  Serious: Yes (Other)
  Sender: FDA-Public Use
  Company Number: 2011-1060

PATIENT
  Age: 76 Year
  Sex: Male

DRUGS (3)
  1. MADOPAR (MADOPAR) [Concomitant]
  2. APO-GO AMPOULES (APO-GO) (APOMORPHINE HYDROCHLORIDE) (APOMORPHINE HYDR [Suspect]
     Indication: PARKINSON'S DISEASE
     Dosage: 7 MG, 1 IN 1 HR
     Dates: start: 20110221
  3. APO-GO AMPOULES (APO-GO) (APOMORPHINE HYDROCHLORIDE) (APOMORPHINE HYDR [Suspect]
     Indication: PARKINSON'S DISEASE
     Dosage: 7 MG, 1 IN 1 HR
     Dates: end: 20110314

REACTIONS (2)
  - OEDEMA PERIPHERAL [None]
  - MALAISE [None]
